FAERS Safety Report 17180584 (Version 9)
Quarter: 2020Q3

REPORT INFORMATION
  Report Type: Report from Study
  Country: ES (occurrence: ES)
  Receive Date: 20191220
  Receipt Date: 20200717
  Transmission Date: 20201102
  Serious: Yes (Hospitalization)
  Sender: FDA-Public Use
  Company Number: ES-ROCHE-2499640

PATIENT
  Age: 75 Year
  Sex: Female
  Weight: 79.8 kg

DRUGS (14)
  1. BENEXOL [Concomitant]
     Active Substance: CYANOCOBALAMIN\PYRIDOXINE\THIAMINE
     Route: 048
     Dates: start: 201901
  2. NIRAPARIB [Suspect]
     Active Substance: NIRAPARIB
     Dosage: MOST RECENT DOSE OF NIRAPARIB WAS 100 MG.
     Route: 048
     Dates: start: 20191230
  3. COBIMETINIB. [Suspect]
     Active Substance: COBIMETINIB
     Dosage: MOST RECENT DOSE OF COBIMETINIB WAS 40 MG.
     Route: 048
     Dates: start: 20191230
  4. NIRAPARIB [Suspect]
     Active Substance: NIRAPARIB
     Indication: OVARIAN CANCER
     Dosage: DATE OF MOST RECENT DOSE OF NIRAPARIB (200 MG) PRIOR TO SAE ONSET: 08/DEC/2019
     Route: 048
     Dates: start: 20191202
  5. ATOLME PLUS [Concomitant]
     Indication: HYPERTENSION
     Route: 048
     Dates: start: 201908, end: 20200204
  6. COBIMETINIB. [Suspect]
     Active Substance: COBIMETINIB
     Indication: OVARIAN CANCER
     Dosage: DATE OF MOST RECENT DOSE (60 MG) OF COBIMETINIB PRIOR TO SAE ONSET: 09/DEC/2019
     Route: 048
     Dates: start: 20191202
  7. OMEPRAZOLE. [Concomitant]
     Active Substance: OMEPRAZOLE
     Indication: PROPHYLAXIS
     Route: 042
     Dates: start: 20191213
  8. DIPRODERM (SPAIN) [Concomitant]
     Indication: DERMATITIS ACNEIFORM
     Route: 061
     Dates: start: 20191213, end: 20191219
  9. PRIMPERAN [Concomitant]
     Active Substance: METOCLOPRAMIDE HYDROCHLORIDE
     Indication: VOMITING
     Route: 042
     Dates: start: 20191212
  10. EUTIROX [Concomitant]
     Active Substance: LEVOTHYROXINE SODIUM
     Indication: HYPOTHYROIDISM
     Route: 048
     Dates: start: 2009
  11. ATEZOLIZUMAB. [Suspect]
     Active Substance: ATEZOLIZUMAB
     Indication: OVARIAN CANCER
     Dosage: DATE OF MOST RECENT DOSE OF ATEZOLIZUMAB (840 MG) PRIOR TO SAE ONSET:02/DEC/2019
     Route: 041
     Dates: start: 20191202
  12. ZYLORIC [Concomitant]
     Active Substance: ALLOPURINOL
     Indication: HYPERURICAEMIA
     Route: 048
     Dates: start: 201909
  13. MAGNOGENE [Concomitant]
     Route: 048
     Dates: start: 201904
  14. DOXYCYCLINE. [Concomitant]
     Active Substance: DOXYCYCLINE
     Indication: DERMATITIS ACNEIFORM
     Route: 048
     Dates: start: 20191213, end: 20191223

REACTIONS (1)
  - Gastrointestinal toxicity [Recovered/Resolved]

NARRATIVE: CASE EVENT DATE: 20191209
